FAERS Safety Report 21359760 (Version 1)
Quarter: 2022Q3

REPORT INFORMATION
  Report Type: Report from Study
  Country: JP (occurrence: JP)
  Receive Date: 20220921
  Receipt Date: 20220921
  Transmission Date: 20221026
  Serious: Yes (Other)
  Sender: FDA-Public Use
  Company Number: JP-RECORDATI RARE DISEASE INC.-2022004235

PATIENT
  Sex: Male
  Weight: .444 kg

DRUGS (10)
  1. NEOPROFEN [Suspect]
     Active Substance: IBUPROFEN LYSINE
     Indication: Patent ductus arteriosus
     Dosage: 4.5 MILLIGRAM
     Route: 042
     Dates: start: 20190622, end: 20190622
  2. NEOPROFEN [Suspect]
     Active Substance: IBUPROFEN LYSINE
     Dosage: 2 UNK
     Route: 042
     Dates: start: 20190623, end: 20190623
  3. INOVAN [DOPAMINE HYDROCHLORIDE] [Concomitant]
     Indication: Hypotension
     Dosage: UNK
     Route: 042
     Dates: start: 20190621, end: 20190626
  4. DOBUTREX [Concomitant]
     Active Substance: DOBUTAMINE HYDROCHLORIDE
     Indication: Hypotension
     Dosage: UNK
     Route: 042
     Dates: start: 20190621, end: 20190626
  5. FENTANYL CITRATE [Concomitant]
     Active Substance: FENTANYL CITRATE
     Indication: Pulmonary hypertension
     Dosage: UNK
     Route: 042
     Dates: start: 20190621, end: 20190704
  6. PLEAMIN P [Concomitant]
     Indication: Parenteral nutrition
     Dosage: UNK
     Route: 042
     Dates: start: 20190621, end: 20190827
  7. CALCIUM GLUCONATE [Concomitant]
     Active Substance: CALCIUM GLUCONATE
     Indication: Electrolyte substitution therapy
     Dosage: UNK
     Route: 042
     Dates: start: 20190621, end: 20190829
  8. MICAFUNGIN SODIUM [Concomitant]
     Active Substance: MICAFUNGIN SODIUM
     Indication: Prophylaxis
     Dosage: UNK
     Route: 042
     Dates: start: 20190621, end: 20190719
  9. VICCILLIN [AMPICILLIN SODIUM] [Concomitant]
     Indication: Prophylaxis
     Dosage: UNK
     Route: 042
     Dates: start: 20190621, end: 20190624
  10. GENTAMICIN SULFATE [Concomitant]
     Active Substance: GENTAMICIN SULFATE
     Indication: Prophylaxis
     Dosage: UNK
     Route: 042
     Dates: start: 20190621, end: 20190623

REACTIONS (1)
  - Haematochezia [Recovering/Resolving]

NARRATIVE: CASE EVENT DATE: 20190623
